FAERS Safety Report 4659351-8 (Version None)
Quarter: 2005Q2

REPORT INFORMATION
  Report Type: 
  Country: None (occurrence: None)
  Receive Date: 20050502
  Receipt Date: 20050225
  Transmission Date: 20051028
  Serious: No
  Sender: FDA-Public Use
  Company Number: 200419342US

PATIENT
  Age: 40 Year
  Sex: Female

DRUGS (7)
  1. KETEK [Suspect]
     Dosage: 800 MG QD PO
     Route: 048
     Dates: start: 20050210, end: 20050220
  2. BETAMETHASONE (CELESTONE) [Concomitant]
  3. NASACORT AQ [Concomitant]
  4. MUPIROCIN (BACTROBAN) [Concomitant]
  5. PARACETAMOL [Concomitant]
  6. DEXTROPROPOXYPHENE NAPSILATE (DARVOCET-N) [Concomitant]
  7. CYMBALTA [Concomitant]

REACTIONS (2)
  - ACCOMMODATION DISORDER [None]
  - VISION BLURRED [None]
